FAERS Safety Report 9028616 (Version 1)
Quarter: 2013Q1

REPORT INFORMATION
  Report Type: Spontaneous
  Country: US (occurrence: US)
  Receive Date: 20130124
  Receipt Date: 20130124
  Transmission Date: 20140127
  Serious: Yes (Hospitalization, Other)
  Sender: FDA-Public Use
  Company Number: US-009507513-1106USA00270

PATIENT
  Sex: 0

DRUGS (3)
  1. FOSAMAX [Suspect]
     Indication: OSTEOPOROSIS
     Dosage: 70 MG, QW
     Route: 048
     Dates: start: 1999, end: 20091210
  2. FOSAMAX [Suspect]
     Indication: OSTEOPENIA
  3. ALENDRONATE SODIUM [Suspect]
     Dosage: 70 MG, QW
     Route: 048
     Dates: start: 20080424, end: 20090923

REACTIONS (30)
  - Femur fracture [Unknown]
  - Fall [Unknown]
  - Femur fracture [Unknown]
  - Rotator cuff syndrome [Not Recovered/Not Resolved]
  - Vestibulitis [Not Recovered/Not Resolved]
  - Sleep disorder [Unknown]
  - Tinnitus [Not Recovered/Not Resolved]
  - Otitis media [Unknown]
  - Coronary artery disease [Not Recovered/Not Resolved]
  - Intervertebral disc space narrowing [Unknown]
  - Spinal osteoarthritis [Not Recovered/Not Resolved]
  - Large intestine polyp [Unknown]
  - Colon adenoma [Unknown]
  - Dysplasia [Unknown]
  - Osteoarthritis [Not Recovered/Not Resolved]
  - Joint effusion [Not Recovered/Not Resolved]
  - Osteoarthritis [Unknown]
  - Lumbar radiculopathy [Unknown]
  - Bursitis [Not Recovered/Not Resolved]
  - Prinzmetal angina [Unknown]
  - Dyspnoea [Unknown]
  - Dilatation atrial [Unknown]
  - Left ventricular dysfunction [Unknown]
  - Low turnover osteopathy [Unknown]
  - Bone disorder [Unknown]
  - Mass [Unknown]
  - Back pain [Unknown]
  - Vertigo [Not Recovered/Not Resolved]
  - Pain in extremity [Unknown]
  - Musculoskeletal pain [Not Recovered/Not Resolved]
